FAERS Safety Report 19076071 (Version 1)
Quarter: 2021Q1

REPORT INFORMATION
  Report Type: Spontaneous
  Country: GB (occurrence: GB)
  Receive Date: 20210330
  Receipt Date: 20210330
  Transmission Date: 20210420
  Serious: Yes (Hospitalization, Other)
  Sender: FDA-Public Use
  Company Number: GB-BAXTER-2021BAX005661

PATIENT
  Age: 77 Year
  Sex: Female
  Weight: 86 kg

DRUGS (8)
  1. PROPOFOL 20MG/ML EMULSION FOR INJECTION/INFUSION [Suspect]
     Active Substance: PROPOFOL
     Indication: ANAESTHESIA
     Route: 065
  2. SUGAMMADEX [Suspect]
     Active Substance: SUGAMMADEX
     Indication: PRODUCT USED FOR UNKNOWN INDICATION
     Route: 065
  3. ROCURONIUM [Suspect]
     Active Substance: ROCURONIUM BROMIDE
     Dosage: A FURTHER 100 MG ROCURONIUM FROM A DIFFERENT BATCH WAS ADMINISTERED WITH NO CLINICAL EFFECT
     Route: 042
  4. ROCURONIUM [Suspect]
     Active Substance: ROCURONIUM BROMIDE
     Dosage: A SECOND CANNULA WAS PLACED IN THE RIGHT ARM
     Route: 042
  5. SEVOFLURANE BAXTER, 100% INHALATION VAPOUR, LIQUID [Suspect]
     Active Substance: SEVOFLURANE
     Indication: ANAESTHESIA
     Route: 042
  6. ROCURONIUM [Suspect]
     Active Substance: ROCURONIUM BROMIDE
     Indication: ANAESTHESIA
     Route: 042
  7. FENTANYL. [Suspect]
     Active Substance: FENTANYL
     Indication: ANAESTHESIA
     Route: 042
  8. SUGAMMADEX [Suspect]
     Active Substance: SUGAMMADEX
     Dosage: INCREASED
     Route: 065

REACTIONS (2)
  - Drug ineffective [Recovering/Resolving]
  - Dyspnoea [Unknown]
